FAERS Safety Report 6607331-5 (Version None)
Quarter: 2010Q1

REPORT INFORMATION
  Report Type: 
  Country: None (occurrence: None)
  Receive Date: 20100301
  Receipt Date: 20100219
  Transmission Date: 20100710
  Serious: Yes (Death, Hospitalization)
  Sender: FDA-Public Use
  Company Number: US-BIOGENIDEC-2009BI031215

PATIENT
  Age: 35 Year
  Sex: Female
  Weight: 50 kg

DRUGS (11)
  1. TYSABRI [Suspect]
     Indication: MULTIPLE SCLEROSIS
     Route: 042
     Dates: start: 20080109, end: 20090904
  2. BACLOFEN [Concomitant]
     Dates: end: 20090101
  3. BACLOFEN [Concomitant]
  4. NEURONTIN [Concomitant]
     Dates: end: 20090101
  5. XANAX [Concomitant]
     Dates: end: 20090101
  6. LEXAPRO [Concomitant]
     Dates: end: 20090101
  7. RISPERDAL [Concomitant]
     Route: 048
     Dates: end: 20090101
  8. SENNA [Concomitant]
     Dates: end: 20090101
  9. ZANAFLEX [Concomitant]
     Dates: end: 20090101
  10. DETROL LA [Concomitant]
     Dates: end: 20090101
  11. OXYTROL [Concomitant]
     Dates: end: 20090101

REACTIONS (2)
  - PROGRESSIVE MULTIFOCAL LEUKOENCEPHALOPATHY [None]
  - ROAD TRAFFIC ACCIDENT [None]
